FAERS Safety Report 5833624-5 (Version None)
Quarter: 2008Q3

REPORT INFORMATION
  Report Type: 
  Country: None (occurrence: None)
  Receive Date: 20080805
  Receipt Date: 20080721
  Transmission Date: 20090109
  Serious: Yes (Hospitalization)
  Sender: FDA-Public Use
  Company Number: FR-ASTRAZENECA-2008CG01095

PATIENT
  Age: 28158 Day
  Sex: Female
  Weight: 65 kg

DRUGS (7)
  1. CARBOCAINE [Suspect]
     Indication: LOCAL ANAESTHESIA
     Route: 053
     Dates: start: 20080301, end: 20080301
  2. CARBOCAINE [Suspect]
     Route: 053
     Dates: start: 20080403, end: 20080403
  3. NAROPEINE [Suspect]
     Indication: LOCAL ANAESTHESIA
     Route: 053
     Dates: start: 20080403, end: 20080403
  4. ULTIVA [Suspect]
     Dosage: 0.05 G/KG/MINUTE
     Route: 041
     Dates: start: 20080301, end: 20080301
  5. ULTIVA [Suspect]
     Dosage: 0.05 G/KG/MINUTE
     Route: 041
     Dates: start: 20080403, end: 20080403
  6. ASPIRIN [Concomitant]
     Indication: ISCHAEMIC CARDIOMYOPATHY
  7. PLAVIX [Concomitant]
     Indication: ISCHAEMIC CARDIOMYOPATHY

REACTIONS (3)
  - DYSKINESIA [None]
  - LOSS OF CONSCIOUSNESS [None]
  - MUSCLE RIGIDITY [None]
